FAERS Safety Report 6143384-9 (Version None)
Quarter: 2009Q2

REPORT INFORMATION
  Report Type: 
  Country: None (occurrence: None)
  Receive Date: 20090403
  Receipt Date: 20090330
  Transmission Date: 20091009
  Serious: Yes (Death, Other)
  Sender: FDA-Public Use
  Company Number: ES-BRISTOL-MYERS SQUIBB COMPANY-14565931

PATIENT
  Age: 82 Year
  Sex: Male

DRUGS (6)
  1. SINEMET CR [Suspect]
     Indication: PARKINSON'S DISEASE
     Dosage: 1 DF= 80 TABLETS(25/250 MG) TAKEN FOR YEARS
     Route: 048
     Dates: end: 20090222
  2. ATROVENT [Suspect]
     Indication: CHRONIC OBSTRUCTIVE PULMONARY DISEASE
     Dosage: ATROVENT MONODOSIS NEBULISER INHALATION SOLUTION, 20 BOTTLES MONODOSIS1
     Route: 042
     Dates: start: 20090226, end: 20090226
  3. MIRAPEX [Suspect]
     Indication: PARKINSON'S DISEASE
     Dosage: TAKEN FOR YEARS STR: 0.7MG 30 TABLETS
     Route: 048
     Dates: end: 20090222
  4. BUTO AIR [Suspect]
     Indication: CHRONIC OBSTRUCTIVE PULMONARY DISEASE
     Dosage: BUTO-AIR 0.5% 20ML ORAL INHALATION SOLN
     Route: 042
     Dates: start: 20090226, end: 20090226
  5. AMOXICILLIN AND CLAVULANATE POTASSIUM [Concomitant]
     Dates: start: 20090222
  6. ATENOLOL [Concomitant]
     Route: 042
     Dates: start: 20090226, end: 20090226

REACTIONS (2)
  - MEDICATION ERROR [None]
  - NEUROLEPTIC MALIGNANT SYNDROME [None]
